FAERS Safety Report 9670360 (Version 2)
Quarter: 2013Q4

REPORT INFORMATION
  Report Type: Spontaneous
  Country: NL (occurrence: NL)
  Receive Date: 20131105
  Receipt Date: 20131105
  Transmission Date: 20140711
  Serious: Yes (Life-Threatening)
  Sender: FDA-Public Use
  Company Number: NL-IPSEN BIOPHARMACEUTICALS, INC.-2013-1904

PATIENT
  Age: 57 Year
  Sex: Male

DRUGS (2)
  1. SOMATULINE AUTOSOLUTION 60MG [Suspect]
     Indication: NEUROENDOCRINE TUMOUR
     Dosage: 60 MG
     Route: 058
     Dates: start: 20130628
  2. SOMATULINE AUTOSOLUTION 60MG [Suspect]
     Dosage: 60 MG
     Route: 058
     Dates: start: 20130111, end: 20130405

REACTIONS (1)
  - Terminal state [Unknown]
